FAERS Safety Report 6037895-4 (Version None)
Quarter: 2009Q1

REPORT INFORMATION
  Report Type: 
  Country: None (occurrence: None)
  Receive Date: 20090115
  Receipt Date: 20090108
  Transmission Date: 20090719
  Serious: Yes (Hospitalization)
  Sender: FDA-Public Use
  Company Number: JP-JNJFOC-20090102713

PATIENT

DRUGS (4)
  1. CRAVIT [Suspect]
     Indication: DRUG USE FOR UNKNOWN INDICATION
     Route: 048
  2. LOPEMIN [Concomitant]
     Route: 065
  3. LAC-B [Concomitant]
     Route: 065
  4. TANNALBIN [Concomitant]
     Route: 065

REACTIONS (2)
  - HAEMATEMESIS [None]
  - PSEUDOMEMBRANOUS COLITIS [None]
